FAERS Safety Report 13230555 (Version 1)
Quarter: 2017Q1

REPORT INFORMATION
  Report Type: Spontaneous
  Country: FR (occurrence: FR)
  Receive Date: 20170214
  Receipt Date: 20170214
  Transmission Date: 20170428
  Serious: Yes (Other)
  Sender: FDA-Public Use
  Company Number: FR-GLAXOSMITHKLINE-FR2017GSK018124

PATIENT
  Age: 69 Year
  Sex: Female

DRUGS (9)
  1. AZANTAC [Suspect]
     Active Substance: RANITIDINE HYDROCHLORIDE
     Indication: PRODUCT USED FOR UNKNOWN INDICATION
     Dosage: 1 DF, SINGLE
     Route: 042
     Dates: start: 20080618, end: 20080618
  2. CORDARONE [Concomitant]
     Active Substance: AMIODARONE HYDROCHLORIDE
     Dosage: UNK
     Dates: start: 200803
  3. RENITEC [Concomitant]
     Active Substance: ENALAPRIL MALEATE
  4. CARVEDILOL. [Concomitant]
     Active Substance: CARVEDILOL
     Dosage: UNK
     Dates: start: 2006
  5. PACLITAXEL. [Interacting]
     Active Substance: PACLITAXEL
     Indication: PRODUCT USED FOR UNKNOWN INDICATION
     Dosage: 160 MG, CYC
     Route: 042
     Dates: start: 20080618, end: 20080618
  6. SOLU-MEDROL [Interacting]
     Active Substance: METHYLPREDNISOLONE SODIUM SUCCINATE
     Indication: PRODUCT USED FOR UNKNOWN INDICATION
     Dosage: 40 MG, CYC
     Route: 042
     Dates: start: 20080618, end: 20080618
  7. SIMVASTATINE [Concomitant]
     Active Substance: SIMVASTATIN
     Dosage: UNK
     Dates: end: 20080527
  8. CALCIPARINE [Concomitant]
     Active Substance: HEPARIN CALCIUM
     Dosage: UNK
     Dates: start: 200803, end: 2008
  9. PREVISCAN (FLUINDIONE) [Suspect]
     Active Substance: FLUINDIONE
     Indication: PRODUCT USED FOR UNKNOWN INDICATION
     Dosage: 0.25 TABLETS AND 0.5 TABLETS ON ALTERNATE DAYS
     Route: 048
     Dates: start: 20080601, end: 20080620

REACTIONS (2)
  - International normalised ratio increased [Recovered/Resolved]
  - Drug interaction [Unknown]

NARRATIVE: CASE EVENT DATE: 20080620
